FAERS Safety Report 4676751-0 (Version None)
Quarter: 2005Q2

REPORT INFORMATION
  Report Type: 
  Country: None (occurrence: None)
  Receive Date: 20050527
  Receipt Date: 20050518
  Transmission Date: 20051028
  Serious: Yes (Other)
  Sender: FDA-Public Use
  Company Number: AU-MERCK-0505AUS00289

PATIENT
  Age: 75 Year
  Sex: Male

DRUGS (2)
  1. PROPECIA [Suspect]
     Indication: ALOPECIA
     Route: 048
     Dates: start: 20020101, end: 20041101
  2. PREDNISOLONE [Concomitant]
     Route: 065

REACTIONS (1)
  - GASTROINTESTINAL CARCINOMA [None]
